FAERS Safety Report 7272987-3 (Version None)
Quarter: 2011Q1

REPORT INFORMATION
  Report Type: 
  Country: None (occurrence: None)
  Receive Date: 20110203
  Receipt Date: 20110131
  Transmission Date: 20110831
  Serious: Yes (Other)
  Sender: FDA-Public Use
  Company Number: A0910703A

PATIENT
  Age: 63 Year
  Sex: Female

DRUGS (3)
  1. NIFEDIPINE [Concomitant]
  2. ADVAIR [Suspect]
     Indication: ASTHMA
     Dosage: 1PUFF PER DAY
     Route: 055
     Dates: start: 20080101
  3. METFORMIN [Concomitant]

REACTIONS (1)
  - RESPIRATORY ARREST [None]
